FAERS Safety Report 5323537-X (Version None)
Quarter: 2007Q2

REPORT INFORMATION
  Report Type: 
  Country: None (occurrence: None)
  Receive Date: 20070514
  Receipt Date: 20070504
  Transmission Date: 20071010
  Serious: Yes (Other)
  Sender: FDA-Public Use
  Company Number: GB-AMGEN-US223789

PATIENT
  Sex: Female

DRUGS (2)
  1. ENBREL [Suspect]
     Indication: COLITIS ULCERATIVE
     Dosage: UNKNOWN
     Route: 058
  2. PREDNISOLONE [Concomitant]
     Route: 048

REACTIONS (1)
  - PYODERMA GANGRENOSUM [None]
